FAERS Safety Report 20951147 (Version 1)
Quarter: 2022Q2

REPORT INFORMATION
  Report Type: Spontaneous
  Country: ES (occurrence: ES)
  Receive Date: 20220613
  Receipt Date: 20220613
  Transmission Date: 20220720
  Serious: Yes (Other)
  Sender: FDA-Public Use
  Company Number: ES-CHEPLA-C20213038

PATIENT
  Age: 41 Year
  Sex: Female

DRUGS (10)
  1. METHOTREXATE SODIUM [Suspect]
     Active Substance: METHOTREXATE SODIUM
     Indication: Burkitt^s lymphoma stage IV
     Dosage: 1 HIGH-DOSE CYCLE
     Route: 037
  2. METHOTREXATE SODIUM [Suspect]
     Active Substance: METHOTREXATE SODIUM
     Dosage: 4 CYCLES
     Route: 065
  3. CYTARABINE [Concomitant]
     Active Substance: CYTARABINE
     Indication: Burkitt^s lymphoma stage IV
     Dosage: 1 HIGH-DOSE CYCLE
     Route: 037
  4. CYTARABINE [Concomitant]
     Active Substance: CYTARABINE
     Dosage: 4 CYCLES
     Route: 065
  5. VINCRISTINE [Concomitant]
     Active Substance: VINCRISTINE
     Indication: Burkitt^s lymphoma stage IV
     Dosage: 1 HIGH-DOSE CYCLE
     Route: 065
  6. DOXORUBICIN [Concomitant]
     Active Substance: DOXORUBICIN
     Indication: Burkitt^s lymphoma stage IV
     Dosage: 1 HIGH-DOSE CYCLE
     Route: 065
  7. ETOPOSIDE [Concomitant]
     Active Substance: ETOPOSIDE
     Indication: Burkitt^s lymphoma stage IV
     Dosage: 1 HIGH-DOSE CYCLE
     Route: 065
  8. CYCLOPHOSPHAMIDE [Concomitant]
     Active Substance: CYCLOPHOSPHAMIDE
     Indication: Burkitt^s lymphoma stage IV
     Dosage: 1 HIGH-DOSE CYCLE
     Route: 065
  9. IFOSFAMIDE [Concomitant]
     Active Substance: IFOSFAMIDE
     Indication: Burkitt^s lymphoma stage IV
     Dosage: 1 HIGH-DOSE CYCLE
     Route: 065
  10. IFOSFAMIDE [Concomitant]
     Active Substance: IFOSFAMIDE
     Dosage: SECOND REGIMEN

REACTIONS (2)
  - Tubulointerstitial nephritis [Unknown]
  - Drug resistance [Unknown]
